FAERS Safety Report 6371448-3 (Version None)
Quarter: 2009Q3

REPORT INFORMATION
  Report Type: 
  Country: None (occurrence: None)
  Receive Date: 20090923
  Receipt Date: 20071008
  Transmission Date: 20100115
  Serious: Yes (Other)
  Sender: FDA-Public Use
  Company Number: US-ASTRAZENECA-2007UW07733

PATIENT
  Age: 11062 Day
  Sex: Female
  Weight: 66.7 kg

DRUGS (29)
  1. SEROQUEL [Suspect]
     Indication: INSOMNIA
     Dosage: 75-600 MG
     Route: 048
     Dates: start: 20020723
  2. SEROQUEL [Suspect]
     Dates: start: 20030101, end: 20051201
  3. ABILIFY [Concomitant]
     Route: 065
  4. EFFEXOR [Concomitant]
     Route: 065
  5. LITHIUM [Concomitant]
     Route: 065
  6. CLONAZEPAM [Concomitant]
     Route: 065
  7. NEURONTIN [Concomitant]
     Route: 048
  8. NEURONTIN [Concomitant]
     Dosage: 600 MA - 1800 MG
     Route: 048
  9. ELAVIL [Concomitant]
     Dosage: 100- 200 MG
     Route: 048
  10. XANAX [Concomitant]
     Dosage: 1 MG DISPENSED
     Route: 065
  11. VENTOLIN [Concomitant]
     Dosage: 2 INHALATIONS FOUR TIMES A DAY
     Route: 048
  12. FLOVENT [Concomitant]
     Dosage: 1 INHALATION TWO TIMES A DAY
     Route: 048
  13. GLUCOPHAGE [Concomitant]
     Dosage: 500-1500 MG
     Route: 048
  14. METOCLOPRAMIDE [Concomitant]
     Dosage: 10 MG FOUR TIMES A DAY AS NEEDED
     Route: 048
  15. SINGULAIR [Concomitant]
     Route: 048
  16. ATENOLOL [Concomitant]
     Dosage: 25-50 MG
     Route: 048
  17. BENADRYL [Concomitant]
     Dosage: 50 MG Q 8 PM
     Route: 048
  18. NAPROXEN [Concomitant]
     Dosage: 500 MG B.I. D PRN
     Route: 048
  19. AVANDIA [Concomitant]
     Route: 048
  20. WELLBUTRIN [Concomitant]
     Dosage: XL 150 MG Q AM
     Route: 048
  21. WELLBUTRIN [Concomitant]
     Dosage: SR 100 MG BID
     Route: 048
  22. GEODON [Concomitant]
     Dosage: 40-160 MG
     Route: 048
  23. DOCUSATE SODIUM [Concomitant]
     Route: 065
  24. BUTALBITAL COMPOUND [Concomitant]
     Route: 065
  25. MACROBID [Concomitant]
     Route: 065
  26. OXYCODONE HCL AND ACETAMINOPHEN [Concomitant]
     Route: 065
  27. FERROUS SULFATE TAB [Concomitant]
     Route: 048
  28. LORAZEPAM [Concomitant]
     Route: 065
  29. CELEBREX [Concomitant]
     Route: 065

REACTIONS (17)
  - BACK PAIN [None]
  - DECREASED APPETITE [None]
  - DIABETES MELLITUS [None]
  - DIARRHOEA [None]
  - DIZZINESS [None]
  - DYSPNOEA [None]
  - EAR PAIN [None]
  - ECZEMA [None]
  - FATIGUE [None]
  - HYPERTHYROIDISM [None]
  - OEDEMA PERIPHERAL [None]
  - PARANOIA [None]
  - SCAR [None]
  - SUICIDAL IDEATION [None]
  - TOOTH ABSCESS [None]
  - TREMOR [None]
  - URTICARIA [None]
